FAERS Safety Report 8058335-X (Version None)
Quarter: 2012Q1

REPORT INFORMATION
  Report Type: 
  Country: None (occurrence: None)
  Receive Date: 20120120
  Receipt Date: 20120111
  Transmission Date: 20120608
  Serious: Yes (Hospitalization)
  Sender: FDA-Public Use
  Company Number: NL-JNJFOC-20111202386

PATIENT
  Sex: Male

DRUGS (2)
  1. REMICADE [Suspect]
     Indication: CROHN'S DISEASE
     Route: 042
     Dates: start: 20090216
  2. PREDNISONE [Concomitant]

REACTIONS (3)
  - GASTROENTERITIS [None]
  - DEHYDRATION [None]
  - VIRAL INFECTION [None]
